FAERS Safety Report 4817730-X (Version None)
Quarter: 2005Q4

REPORT INFORMATION
  Report Type: 
  Country: None (occurrence: None)
  Receive Date: 20051101
  Receipt Date: 20051101
  Transmission Date: 20060501
  Serious: Yes (Life-Threatening, Hospitalization)
  Sender: FDA-Public Use
  Company Number: None

PATIENT
  Age: 71 Year
  Sex: Female
  Weight: 36.7 kg

DRUGS (1)
  1. LYRICA [Suspect]
     Indication: NEURALGIA
     Dosage: 75 MG 1 BID
     Dates: start: 20050922, end: 20051028

REACTIONS (5)
  - ASTHENIA [None]
  - CONTUSION [None]
  - NAUSEA [None]
  - PANCYTOPENIA [None]
  - VOMITING [None]
